FAERS Safety Report 10620227 (Version 1)
Quarter: 2014Q4

REPORT INFORMATION
  Report Type: Spontaneous
  Country: DE (occurrence: DE)
  Receive Date: 20141202
  Receipt Date: 20141202
  Transmission Date: 20150529
  Serious: Yes (Hospitalization)
  Sender: FDA-Public Use
  Company Number: DE-TEVA-525776GER

PATIENT
  Age: 40 Year
  Sex: Male

DRUGS (16)
  1. RAMIPRIL. [Concomitant]
     Active Substance: RAMIPRIL
     Dosage: 5 MILLIGRAM DAILY;
     Route: 048
     Dates: start: 20130203, end: 20130227
  2. ORFIRIL [Suspect]
     Active Substance: VALPROIC ACID
     Dosage: 1500 MILLIGRAM DAILY;
     Route: 048
     Dates: start: 20140223, end: 20140227
  3. DIAZEPAM. [Suspect]
     Active Substance: DIAZEPAM
     Route: 048
     Dates: start: 20130301, end: 20130318
  4. ORFIRIL [Suspect]
     Active Substance: VALPROIC ACID
     Dosage: 450 MILLIGRAM DAILY;
     Route: 048
     Dates: start: 20130220, end: 20130221
  5. ORFIRIL [Suspect]
     Active Substance: VALPROIC ACID
     Dosage: 900 MILLIGRAM DAILY;
     Route: 048
     Dates: start: 20130221, end: 20130222
  6. BISOPROLOL [Concomitant]
     Active Substance: BISOPROLOL
     Dosage: 5 MILLIGRAM DAILY;
     Route: 048
     Dates: start: 20130203, end: 20130227
  7. BISOPROLOL [Concomitant]
     Active Substance: BISOPROLOL
     Route: 048
     Dates: start: 20130301
  8. DIAZEPAM. [Suspect]
     Active Substance: DIAZEPAM
     Dosage: 17.5 MILLIGRAM DAILY;
     Route: 048
     Dates: start: 20130206, end: 20130207
  9. RAMIPRIL. [Concomitant]
     Active Substance: RAMIPRIL
     Route: 048
     Dates: start: 20130301
  10. ORFIRIL [Suspect]
     Active Substance: VALPROIC ACID
     Dosage: 1200 MILLIGRAM DAILY;
     Route: 048
     Dates: start: 20130222, end: 20130223
  11. ZYPREXA [Suspect]
     Active Substance: OLANZAPINE
     Dosage: 10 MILLIGRAM DAILY;
     Route: 048
     Dates: start: 20130203, end: 20130206
  12. ZYPREXA [Suspect]
     Active Substance: OLANZAPINE
     Dosage: 15 MILLIGRAM DAILY;
     Route: 048
     Dates: start: 20130206, end: 20130227
  13. DIAZEPAM. [Suspect]
     Active Substance: DIAZEPAM
     Dosage: 10 MILLIGRAM DAILY;
     Route: 048
     Dates: start: 20130203, end: 20130206
  14. DIAZEPAM. [Suspect]
     Active Substance: DIAZEPAM
     Dosage: 15 MILLIGRAM DAILY;
     Route: 048
     Dates: start: 20130207, end: 20130227
  15. ZYPREXA [Suspect]
     Active Substance: OLANZAPINE
     Route: 048
     Dates: start: 20130314, end: 20130318
  16. ZYPREXA [Suspect]
     Active Substance: OLANZAPINE
     Route: 048
     Dates: start: 20130301, end: 20130313

REACTIONS (1)
  - Encephalopathy [Recovered/Resolved]

NARRATIVE: CASE EVENT DATE: 20130227
